FAERS Safety Report 23433158 (Version 1)
Quarter: 2024Q1

REPORT INFORMATION
  Report Type: Spontaneous
  Country: CA (occurrence: CA)
  Receive Date: 20240123
  Receipt Date: 20240123
  Transmission Date: 20240410
  Serious: Yes (Other)
  Sender: FDA-Public Use
  Company Number: CA-SA-2023SA248068

PATIENT
  Age: 35 Year
  Sex: Female

DRUGS (19)
  1. DUPILUMAB [Suspect]
     Active Substance: DUPILUMAB
     Indication: Cheilitis
     Dosage: 600 MG LOADING DOSE
  2. DUPILUMAB [Suspect]
     Active Substance: DUPILUMAB
     Dosage: 300 MG, Q4W
  3. CORTICOSTEROID NOS [Concomitant]
     Active Substance: CORTICOSTEROID NOS
     Indication: Rosacea
     Dosage: UNK
     Route: 061
  4. CORTICOSTEROID NOS [Concomitant]
     Active Substance: CORTICOSTEROID NOS
     Indication: Dermatitis atopic
  5. TACROLIMUS [Concomitant]
     Active Substance: TACROLIMUS
     Indication: Rosacea
     Dosage: UNK
     Route: 061
  6. TACROLIMUS [Concomitant]
     Active Substance: TACROLIMUS
     Indication: Dermatitis atopic
  7. DOXYCYCLINE [Concomitant]
     Active Substance: DOXYCYCLINE
     Indication: Rosacea
     Dosage: UNK
  8. DOXYCYCLINE [Concomitant]
     Active Substance: DOXYCYCLINE
     Indication: Dermatitis atopic
  9. PETROLEUM JELLY [Concomitant]
     Active Substance: PETROLATUM
     Indication: Rosacea
     Dosage: UNK
  10. PETROLEUM JELLY [Concomitant]
     Active Substance: PETROLATUM
     Indication: Dermatitis atopic
  11. HYDROCORTISONE VALERATE [Concomitant]
     Active Substance: HYDROCORTISONE VALERATE
     Indication: Dermatitis atopic
     Dosage: UNK
  12. HYDROCORTISONE VALERATE [Concomitant]
     Active Substance: HYDROCORTISONE VALERATE
     Indication: Cheilitis
  13. VALACYCLOVIR [Concomitant]
     Active Substance: VALACYCLOVIR HYDROCHLORIDE
     Indication: Prophylaxis
     Dosage: 500 MG, BID
  14. DAPSONE [Concomitant]
     Active Substance: DAPSONE
     Indication: Pustule
     Dosage: UNK UNK, BID
  15. DAPSONE [Concomitant]
     Active Substance: DAPSONE
     Indication: Cheilitis
  16. CRISABOROLE [Concomitant]
     Active Substance: CRISABOROLE
     Indication: Cheilitis
     Dosage: UNK UNK, BID
  17. ISOTRETINOIN [Concomitant]
     Active Substance: ISOTRETINOIN
     Indication: Cheilitis
     Dosage: 10 MG, QD
  18. METHOTREXATE [Concomitant]
     Active Substance: METHOTREXATE
     Indication: Cheilitis
     Dosage: UNK
  19. PARAFFIN [Concomitant]
     Active Substance: PARAFFIN
     Indication: Prophylaxis

REACTIONS (3)
  - Eyelid irritation [Unknown]
  - Off label use [Unknown]
  - Drug effective for unapproved indication [Unknown]
